FAERS Safety Report 8607907-X (Version None)
Quarter: 2012Q3

REPORT INFORMATION
  Report Type: 
  Country: None (occurrence: None)
  Receive Date: 20120821
  Receipt Date: 20120813
  Transmission Date: 20120928
  Serious: Yes (Hospitalization)
  Sender: FDA-Public Use
  Company Number: US-BAYER-2012-083656

PATIENT
  Sex: Female

DRUGS (2)
  1. YASMIN [Suspect]
     Dosage: UNK
     Dates: start: 20061101
  2. YAZ [Suspect]
     Dosage: UNK
     Dates: start: 20061101

REACTIONS (5)
  - INJURY [None]
  - EMOTIONAL DISTRESS [None]
  - DEEP VEIN THROMBOSIS [None]
  - PAIN [None]
  - PULMONARY EMBOLISM [None]
